FAERS Safety Report 6980548-6 (Version None)
Quarter: 2010Q3

REPORT INFORMATION
  Report Type: 
  Country: None (occurrence: None)
  Receive Date: 20100914
  Receipt Date: 20100907
  Transmission Date: 20110219
  Serious: Yes (Other)
  Sender: FDA-Public Use
  Company Number: PHHY2010AU49465

PATIENT
  Sex: Female

DRUGS (2)
  1. SYNTOCINON [Suspect]
     Dosage: 10 IU BOLUS DOSE
     Route: 040
  2. SYNTOCINON [Suspect]
     Dosage: 40 IU, UNK

REACTIONS (1)
  - POSTPARTUM HAEMORRHAGE [None]
